FAERS Safety Report 6600547-3 (Version None)
Quarter: 2010Q1

REPORT INFORMATION
  Report Type: 
  Country: None (occurrence: None)
  Receive Date: 20100223
  Receipt Date: 20100223
  Transmission Date: 20100710
  Serious: Yes (Other)
  Sender: FDA-Public Use
  Company Number: None

PATIENT
  Sex: Male
  Weight: 92.5338 kg

DRUGS (1)
  1. TOPROL-XL [Suspect]
     Indication: CORONARY ARTERY DISEASE
     Dosage: 50 MG QD PO
     Route: 048
     Dates: start: 20030101

REACTIONS (2)
  - CHEST PAIN [None]
  - NAUSEA [None]
